FAERS Safety Report 10167706 (Version 3)
Quarter: 2014Q2

REPORT INFORMATION
  Report Type: Spontaneous
  Country: JP (occurrence: JP)
  Receive Date: 20140512
  Receipt Date: 20140606
  Transmission Date: 20141212
  Serious: Yes (Hospitalization)
  Sender: FDA-Public Use
  Company Number: JP-PFIZER INC-2014126911

PATIENT
  Age: 89 Year
  Sex: Female
  Weight: 47 kg

DRUGS (9)
  1. CADUET [Suspect]
     Indication: HYPERTENSION
     Dosage: 2.5 MG/ 5 MG, 1 DF, DAILY
     Route: 048
     Dates: start: 20120414, end: 20140407
  2. CADUET [Suspect]
     Indication: DYSLIPIDAEMIA
  3. AVAPRO [Concomitant]
     Indication: HYPERTENSION
     Dosage: 50 MG, 2X/DAY
     Route: 048
  4. TROXSIN [Concomitant]
     Indication: GASTROINTESTINAL DISORDER
     Dosage: 100 MG, 3X/DAY
     Route: 048
  5. MEMARY [Concomitant]
     Indication: DEMENTIA
     Dosage: 20 MG, DAILY
     Route: 048
  6. MAGNESIUM OXIDE [Concomitant]
     Dosage: UNK
     Route: 048
  7. YOKUKAN-SAN [Concomitant]
     Dosage: 2.5 G, 1X/DAY
     Route: 048
  8. CHOTO-SAN [Concomitant]
     Dosage: 2.5 G, 1X/DAY
     Route: 048
  9. RESPLEN [Concomitant]
     Dosage: UNK
     Route: 048

REACTIONS (3)
  - Rhabdomyolysis [Recovered/Resolved]
  - Cough [Unknown]
  - Pyrexia [Unknown]
